FAERS Safety Report 22212696 (Version 1)
Quarter: 2023Q2

REPORT INFORMATION
  Report Type: Spontaneous
  Country: RO (occurrence: RO)
  Receive Date: 20230414
  Receipt Date: 20230414
  Transmission Date: 20230722
  Serious: Yes (Other)
  Sender: FDA-Public Use
  Company Number: RO-Merck Healthcare KGaA-9394742

PATIENT
  Age: 66 Year

DRUGS (1)
  1. ERBITUX [Suspect]
     Active Substance: CETUXIMAB
     Indication: Squamous cell carcinoma of head and neck
     Dosage: UNK UNK, UNKNOWN
     Route: 065
     Dates: start: 201701

REACTIONS (1)
  - Disease recurrence [Unknown]
